FAERS Safety Report 10154938 (Version 1)
Quarter: 2014Q2

REPORT INFORMATION
  Report Type: Spontaneous
  Country: US (occurrence: US)
  Receive Date: 20140506
  Receipt Date: 20140506
  Transmission Date: 20141212
  Serious: Yes (Hospitalization, Other)
  Sender: FDA-Public Use
  Company Number: US-PFIZER INC-2014122855

PATIENT
  Age: 53 Year
  Sex: Female
  Weight: 76.2 kg

DRUGS (3)
  1. LYRICA [Suspect]
     Indication: PSYCHOGENIC PAIN DISORDER
     Dosage: 200 MG, 3X/DAY
  2. LEFLUNOMIDE [Concomitant]
     Indication: RHEUMATOID ARTHRITIS
     Dosage: 40 MG, DAILY
  3. ATORVASTATIN [Concomitant]
     Indication: BLOOD CHOLESTEROL INCREASED
     Dosage: 80 MG, DAILY

REACTIONS (4)
  - Pancreatitis [Unknown]
  - Malaise [Recovering/Resolving]
  - Influenza [Recovering/Resolving]
  - Tremor [Unknown]
